FAERS Safety Report 4378554-3 (Version None)
Quarter: 2004Q2

REPORT INFORMATION
  Report Type: 
  Country: None (occurrence: None)
  Receive Date: 20040616
  Receipt Date: 20040607
  Transmission Date: 20050107
  Serious: Yes (Hospitalization)
  Sender: FDA-Public Use
  Company Number: FR-GLAXOSMITHKLINE-B0335044A

PATIENT
  Age: 61 Year
  Sex: Female

DRUGS (1)
  1. AUGMENTIN [Suspect]
     Indication: ERYSIPELAS
     Route: 048
     Dates: start: 20031219, end: 20040109

REACTIONS (5)
  - ABDOMINAL ABSCESS [None]
  - LEUKOCYTOCLASTIC VASCULITIS [None]
  - PYREXIA [None]
  - URINARY TRACT INFECTION [None]
  - VASCULAR PURPURA [None]
